FAERS Safety Report 8583697-4 (Version None)
Quarter: 2012Q3

REPORT INFORMATION
  Report Type: 
  Country: None (occurrence: None)
  Receive Date: 20120809
  Receipt Date: 20120710
  Transmission Date: 20120928
  Serious: Yes (Hospitalization, Other)
  Sender: FDA-Public Use
  Company Number: US-009507513-2012SP034987

PATIENT

DRUGS (6)
  1. VENLAFAXINE HYDROCHOLRIDE [Concomitant]
     Indication: CONTRACEPTION
  2. NUVARING [Suspect]
     Indication: MIGRAINE
     Dosage: UNK
     Dates: start: 20050311, end: 20060517
  3. VENLAFAXINE HYDROCHOLRIDE [Concomitant]
     Indication: DEPRESSION
     Dosage: 112.5 MG, QD
     Dates: start: 20000101, end: 20060101
  4. VENLAFAXINE HYDROCHOLRIDE [Concomitant]
     Indication: ADJUSTMENT DISORDER
  5. NUVARING [Suspect]
     Indication: HORMONE THERAPY
  6. NUVARING [Suspect]
     Indication: CONTRACEPTION

REACTIONS (6)
  - PHLEBITIS SUPERFICIAL [None]
  - INCORRECT DRUG ADMINISTRATION DURATION [None]
  - METRORRHAGIA [None]
  - PULMONARY INFARCTION [None]
  - LUNG INFILTRATION [None]
  - PULMONARY EMBOLISM [None]
